FAERS Safety Report 8999729 (Version 1)
Quarter: 2013Q1

REPORT INFORMATION
  Report Type: Spontaneous
  Country: US (occurrence: US)
  Receive Date: 20130102
  Receipt Date: 20130102
  Transmission Date: 20140127
  Serious: No
  Sender: FDA-Public Use
  Company Number: US-TEVA-377749USA

PATIENT
  Sex: Female

DRUGS (1)
  1. AZILECT [Suspect]
     Indication: PARKINSON^S DISEASE
     Dosage: 1 TABLET DAILY;
     Route: 048
     Dates: start: 20121205, end: 20121206

REACTIONS (4)
  - Anxiety [Recovered/Resolved]
  - Flushing [Recovered/Resolved]
  - Hypertension [Recovered/Resolved]
  - Nausea [Not Recovered/Not Resolved]
